FAERS Safety Report 6790327-0 (Version None)
Quarter: 2010Q2

REPORT INFORMATION
  Report Type: 
  Country: None (occurrence: None)
  Receive Date: 20100624
  Receipt Date: 20100614
  Transmission Date: 20101027
  Serious: Yes (Other)
  Sender: FDA-Public Use
  Company Number: SE-BAXTER-2010BH015904

PATIENT
  Sex: Male

DRUGS (2)
  1. GAMMAGARD LIQUID [Suspect]
     Indication: WEGENER'S GRANULOMATOSIS
     Route: 042
  2. GAMMAGARD LIQUID [Suspect]
     Indication: OFF LABEL USE
     Route: 042

REACTIONS (2)
  - ANTI-HBC IGG ANTIBODY POSITIVE [None]
  - ANTI-HBS ANTIBODY POSITIVE [None]
